FAERS Safety Report 8356882-4 (Version None)
Quarter: 2012Q2

REPORT INFORMATION
  Report Type: 
  Country: None (occurrence: None)
  Receive Date: 20120514
  Receipt Date: 20120507
  Transmission Date: 20120825
  Serious: No
  Sender: FDA-Public Use
  Company Number: US-PFIZER INC-2012109645

PATIENT
  Sex: Male
  Weight: 81 kg

DRUGS (6)
  1. LIPITOR [Suspect]
     Indication: CORONARY ARTERY BYPASS
     Dosage: UNK
     Dates: start: 20070801
  2. FISH OIL [Concomitant]
     Dosage: UNK
  3. GLUCOSAMINE [Concomitant]
     Indication: ARTHROPATHY
     Dosage: 1500 MG DAILY
  4. NIACIN [Concomitant]
     Indication: HIGH DENSITY LIPOPROTEIN DECREASED
     Dosage: 500 MG DAILY
  5. METHYLSULFONYLMETHANE [Concomitant]
     Indication: ARTHROPATHY
     Dosage: 1500 MG DAILY
  6. ATORVASTATIN CALCIUM [Suspect]
     Indication: CORONARY ARTERY BYPASS
     Dosage: 40 MG DAILY
     Dates: start: 20120101

REACTIONS (4)
  - TENDON PAIN [None]
  - MUSCLE STRAIN [None]
  - MYALGIA [None]
  - ARTHRALGIA [None]
